FAERS Safety Report 21264057 (Version 1)
Quarter: 2022Q3

REPORT INFORMATION
  Report Type: Spontaneous
  Country: US (occurrence: US)
  Receive Date: 20220829
  Receipt Date: 20220829
  Transmission Date: 20221026
  Serious: Yes (Other)
  Sender: FDA-Public Use
  Company Number: US-RECORDATI-2022000057

PATIENT
  Age: 10 Year
  Sex: Male
  Weight: 29.6 kg

DRUGS (5)
  1. DACTINOMYCIN [Suspect]
     Active Substance: DACTINOMYCIN
     Indication: Embryonal rhabdomyosarcoma
     Dosage: 0.05 MG/KG FOR PATIENTS NO LESS THAN 14 KG OF WEIGHT (MAX DOSE 2.5MG)
     Route: 042
     Dates: start: 20190301
  2. TEMSIROLIMUS [Suspect]
     Active Substance: TEMSIROLIMUS
     Indication: Embryonal rhabdomyosarcoma
     Dosage: 15 MG/M2 MG/M2 FOR PATIENTS NO LESS THAN 10 KG OF WEIGHT (MAX DOSE 25MG)
     Route: 042
     Dates: start: 20190302
  3. VINCRISTINE SULFATE [Suspect]
     Active Substance: VINCRISTINE SULFATE
     Indication: Embryonal rhabdomyosarcoma
     Dosage: 0.5 MG/M2 FOR PATIENTS NO LESS THAN 0.6 M2 OF BODY SURFACE (MAX DOSE 2MG)
     Route: 042
     Dates: start: 20190301
  4. CYCLOPHOSPHAMIDE [Suspect]
     Active Substance: CYCLOPHOSPHAMIDE
     Indication: Embryonal rhabdomyosarcoma
     Dosage: 1200 MG/M2 FOR PATIENTS NO LESS THAN 0.6 M2 OF BODY SURFACE
     Route: 042
     Dates: start: 20190302
  5. CYCLOPHOSPHAMIDE [Suspect]
     Active Substance: CYCLOPHOSPHAMIDE
     Dosage: MAINTENANCE DOSE 25 MG/M2 ONCE A DAY
     Route: 048

REACTIONS (1)
  - Stomatitis [Recovered/Resolved]

NARRATIVE: CASE EVENT DATE: 20190313
